FAERS Safety Report 6468206-8 (Version None)
Quarter: 2009Q4

REPORT INFORMATION
  Report Type: 
  Country: None (occurrence: None)
  Receive Date: 20091125
  Receipt Date: 20091110
  Transmission Date: 20100525
  Serious: Yes (Hospitalization)
  Sender: FDA-Public Use
  Company Number: 2009PV038709

PATIENT
  Age: 56 Year
  Sex: Female
  Weight: 74.8435 kg

DRUGS (10)
  1. SYMLIN [Suspect]
     Dosage: 60 MCG; TID; SC
     Route: 058
     Dates: start: 20090301, end: 20090701
  2. SYMLIN [Suspect]
     Dosage: 60 MCG; TID; SC
     Route: 058
     Dates: start: 20090901
  3. SYMLIN [Suspect]
     Dosage: 15 MCG TID; SC
     Route: 058
     Dates: start: 20090301, end: 20090301
  4. HUMALOG [Concomitant]
  5. SYNTHROID [Concomitant]
  6. CLINORIL [Concomitant]
  7. ANTIGLAUCOMA PREPARATIONS AND MIOTICS [Concomitant]
  8. LIPITOR [Concomitant]
  9. ACETAMINOPHEN [Concomitant]
  10. ESTROGEN NOS [Concomitant]

REACTIONS (2)
  - BACK PAIN [None]
  - BOWEL MOVEMENT IRREGULARITY [None]
